FAERS Safety Report 7178296-5 (Version None)
Quarter: 2010Q4

REPORT INFORMATION
  Report Type: 
  Country: None (occurrence: None)
  Receive Date: 20101220
  Receipt Date: 20101215
  Transmission Date: 20110411
  Serious: Yes (Hospitalization)
  Sender: FDA-Public Use
  Company Number: BR-ABBOTT-10P-020-0664000-00

PATIENT
  Sex: Female
  Weight: 68 kg

DRUGS (13)
  1. HUMIRA [Suspect]
     Indication: RHEUMATOID ARTHRITIS
     Route: 058
     Dates: start: 20090101, end: 20100715
  2. SIMVAX [Suspect]
     Indication: MUSCULOSKELETAL PAIN
  3. SIMVAX [Suspect]
     Indication: BLOOD CHOLESTEROL INCREASED
  4. METHOTREXATE [Concomitant]
     Indication: RHEUMATOID ARTHRITIS
     Route: 048
  5. SODIUM ALENDRONATE [Concomitant]
     Indication: OSTEOPENIA
     Route: 048
  6. FOLIC ACID [Concomitant]
     Indication: IMMUNE SYSTEM DISORDER
     Route: 048
  7. FOLIC ACID [Concomitant]
     Indication: CARDIAC DISORDER
  8. CALCIUM [Concomitant]
     Indication: OSTEOPENIA
     Route: 048
     Dates: start: 20020101
  9. FAMOTIDINE 40MG, MELOXICAM 15MG [Concomitant]
     Indication: RHEUMATOID ARTHRITIS
     Route: 048
  10. RANITIDINE, PREDNISONE, MELOXICAM, CHLOROQUINE (MAGISTRAL FORMULA) [Concomitant]
     Indication: RHEUMATOID ARTHRITIS
     Route: 048
     Dates: end: 20100401
  11. CARVEDILOL [Concomitant]
     Indication: PRODUCT USED FOR UNKNOWN INDICATION
  12. ASPIRIN [Concomitant]
     Indication: PRODUCT USED FOR UNKNOWN INDICATION
  13. METICORTEN [Concomitant]
     Indication: PRODUCT USED FOR UNKNOWN INDICATION

REACTIONS (9)
  - BLOOD CHOLESTEROL INCREASED [None]
  - CHEST PAIN [None]
  - DYSPNOEA [None]
  - HYPERSENSITIVITY [None]
  - INJECTION SITE PAIN [None]
  - LIVER DISORDER [None]
  - MITRAL VALVE STENOSIS [None]
  - RENAL DISORDER [None]
  - SKIN IRRITATION [None]
